FAERS Safety Report 4758204-4 (Version None)
Quarter: 2005Q3

REPORT INFORMATION
  Report Type: 
  Country: None (occurrence: None)
  Receive Date: 20050829
  Receipt Date: 20050815
  Transmission Date: 20060218
  Serious: Yes (Other)
  Sender: FDA-Public Use
  Company Number: THYR-10244

PATIENT
  Age: 63 Year
  Sex: Female
  Weight: 66.4 kg

DRUGS (10)
  1. THYROGEN [Suspect]
     Indication: DRUG USE FOR UNKNOWN INDICATION
     Dosage: 0.9 MG ONCE; IM
     Route: 030
     Dates: start: 20050502, end: 20050502
  2. EZETROL [Concomitant]
  3. NORVASC [Concomitant]
  4. AVAPRO [Concomitant]
  5. BISOPROLOL [Concomitant]
  6. LASIX [Concomitant]
  7. OXAZEPAM [Concomitant]
  8. SYNTHROID [Concomitant]
  9. OSCAL [Concomitant]
  10. ARANESP [Concomitant]

REACTIONS (5)
  - BLOOD CREATININE INCREASED [None]
  - CONDITION AGGRAVATED [None]
  - NAUSEA [None]
  - PERITONEAL DIALYSIS [None]
  - PYREXIA [None]
